FAERS Safety Report 4523931-0 (Version None)
Quarter: 2004Q4

REPORT INFORMATION
  Report Type: 
  Country: None (occurrence: None)
  Receive Date: 20041209
  Receipt Date: 20041108
  Transmission Date: 20050328
  Serious: Yes (Other)
  Sender: FDA-Public Use
  Company Number: 2004-DE-05750GD

PATIENT

DRUGS (4)
  1. BROMHEXINE (BROMHEXINE HYDROCHLORIDE) (BROMHEXINE-HCL) [Suspect]
     Dosage: IU
     Route: 015
  2. FENOTEROL (FENOTEROL HYDROBROMIDE) (FENOTEROL-HBR) [Suspect]
     Dosage: IU
     Route: 015
  3. ORCIPRENALINE (ORCIPRENALINE SULFATE) (ORCIPRENALINE SULFATE) [Suspect]
     Dosage: IU
     Route: 015
  4. ACETYLSALICYLIC ACID (ACETYLALICYLIC ACID 'BAYER') [Suspect]
     Dosage: IU
     Route: 015

REACTIONS (4)
  - ANENCEPHALY [None]
  - DRUG EXPOSURE DURING PREGNANCY [None]
  - ENCEPHALOCELE [None]
  - SPINA BIFIDA [None]
